FAERS Safety Report 5116891-5 (Version None)
Quarter: 2006Q3

REPORT INFORMATION
  Report Type: 
  Country: None (occurrence: None)
  Receive Date: 20060925
  Receipt Date: 20060915
  Transmission Date: 20061208
  Serious: Yes (Death, Hospitalization, Other)
  Sender: FDA-Public Use
  Company Number: 2006031460

PATIENT
  Age: 44 Year
  Sex: Female

DRUGS (8)
  1. NEURONTIN [Suspect]
     Indication: BIPOLAR DISORDER
  2. CLONAZEPAM [Concomitant]
  3. TRI-LEVLEN 28 [Concomitant]
  4. RISPERDAL [Concomitant]
  5. TRAZODONE HCL [Concomitant]
  6. PAXIL CR [Concomitant]
  7. LAMICTAL [Concomitant]
  8. FORMALDEHYDE SOLUTION (FORMALDEHYDE) [Concomitant]

REACTIONS (17)
  - ANXIETY [None]
  - COMPLETED SUICIDE [None]
  - DRUG INEFFECTIVE [None]
  - EMOTIONAL DISORDER [None]
  - GUN SHOT WOUND [None]
  - HAEMORRHAGE INTRACRANIAL [None]
  - HOMICIDAL IDEATION [None]
  - MAJOR DEPRESSION [None]
  - MANIA [None]
  - MOOD SWINGS [None]
  - OVERDOSE [None]
  - PANIC REACTION [None]
  - PSYCHOTIC DISORDER [None]
  - SCHIZOAFFECTIVE DISORDER [None]
  - SKULL FRACTURE [None]
  - SUICIDAL IDEATION [None]
  - TRAUMATIC BRAIN INJURY [None]
